FAERS Safety Report 8524303-4 (Version None)
Quarter: 2012Q3

REPORT INFORMATION
  Report Type: 
  Country: None (occurrence: None)
  Receive Date: 20120716
  Receipt Date: 20120716
  Transmission Date: 20120928
  Serious: No
  Sender: FDA-Public Use
  Company Number: None

PATIENT
  Age: 56 Year
  Sex: Male

DRUGS (2)
  1. RIBAVIRIN [Suspect]
     Indication: HEPATITIS C
     Dosage: 600MG BID PO
     Route: 048
     Dates: start: 20120207
  2. PEGASYS [Suspect]
     Indication: HEPATITIS C
     Dosage: 180MCG QW SUBQ
     Route: 058
     Dates: start: 20120207

REACTIONS (3)
  - STOMATITIS [None]
  - PROCTITIS [None]
  - GASTROINTESTINAL TRACT IRRITATION [None]
